FAERS Safety Report 20603400 (Version 1)
Quarter: 2022Q1

REPORT INFORMATION
  Report Type: Spontaneous
  Country: US (occurrence: US)
  Receive Date: 20220316
  Receipt Date: 20220316
  Transmission Date: 20220424
  Serious: Yes (Hospitalization, Other)
  Sender: FDA-Public Use
  Company Number: US-ORGANON-O2203USA001059

PATIENT
  Sex: Female

DRUGS (4)
  1. DULERA [Suspect]
     Active Substance: FORMOTEROL FUMARATE DIHYDRATE\MOMETASONE FUROATE
     Indication: Chronic obstructive pulmonary disease
     Dosage: 2 PUFFS TWICE DAILY; ROUTE REPORTED AS MOUTH
     Route: 048
     Dates: start: 20211203
  2. ALBUTEROL [Suspect]
     Active Substance: ALBUTEROL
     Indication: Dyspnoea
     Dosage: UNK
     Dates: start: 20211203
  3. ELIQUIS [Concomitant]
     Active Substance: APIXABAN
     Dosage: UNK
  4. INCRUSE ELLIPTA [Concomitant]
     Active Substance: UMECLIDINIUM BROMIDE
     Dosage: UNK

REACTIONS (2)
  - Pneumonia [Not Recovered/Not Resolved]
  - Alopecia [Not Recovered/Not Resolved]

NARRATIVE: CASE EVENT DATE: 20210101
